FAERS Safety Report 7328717-X (Version None)
Quarter: 2011Q1

REPORT INFORMATION
  Report Type: 
  Country: None (occurrence: None)
  Receive Date: 20110303
  Receipt Date: 20110223
  Transmission Date: 20110831
  Serious: Yes (Other)
  Sender: FDA-Public Use
  Company Number: US-ROCHE-754802

PATIENT
  Sex: Female
  Weight: 60 kg

DRUGS (6)
  1. OSCAL [Concomitant]
     Indication: OSTEOPOROSIS PROPHYLAXIS
     Dosage: DOSE: 500
     Route: 048
  2. CELLCEPT [Suspect]
     Route: 048
     Dates: start: 20100927
  3. RANITIDINE [Concomitant]
     Dosage: DOSE: 300
     Route: 048
  4. SYNTHROID [Concomitant]
     Indication: HYPOTHYROIDISM
     Route: 048
  5. PREDNISOLONE [Concomitant]
     Route: 048
  6. ZEGERID [Interacting]
     Dosage: DOSE: 40-1.1
     Route: 048

REACTIONS (3)
  - DRUG INTERACTION [None]
  - PULMONARY FUNCTION TEST DECREASED [None]
  - NO THERAPEUTIC RESPONSE [None]
